FAERS Safety Report 8497805-7 (Version None)
Quarter: 2012Q3

REPORT INFORMATION
  Report Type: 
  Country: None (occurrence: None)
  Receive Date: 20120709
  Receipt Date: 20120611
  Transmission Date: 20120928
  Serious: No
  Sender: FDA-Public Use
  Company Number: US-AMGEN-USASP2012036298

PATIENT
  Sex: Female

DRUGS (2)
  1. ENBREL [Suspect]
     Indication: PSORIASIS
     Dosage: UNK
  2. ENBREL [Suspect]
     Indication: PSORIATIC ARTHROPATHY

REACTIONS (6)
  - INJECTION SITE PAIN [None]
  - FEELING ABNORMAL [None]
  - HYPERSENSITIVITY [None]
  - INJECTION SITE URTICARIA [None]
  - INJECTION SITE DISCOLOURATION [None]
  - PSORIASIS [None]
